FAERS Safety Report 23816483 (Version 1)
Quarter: 2024Q2

REPORT INFORMATION
  Report Type: Spontaneous
  Country: FR (occurrence: FR)
  Receive Date: 20240503
  Receipt Date: 20240503
  Transmission Date: 20240716
  Serious: No
  Sender: FDA-Public Use
  Company Number: FR-SANDOZ-SDZ2023FR049330

PATIENT
  Sex: Male

DRUGS (1)
  1. OMNITROPE [Suspect]
     Active Substance: SOMATROPIN
     Indication: Product used for unknown indication
     Dosage: 3.7 MG ,7MG/INJECTION 6 DAYS/7 FOR 3 YEARS
     Route: 065

REACTIONS (2)
  - Drug dose omission by device [Unknown]
  - Device defective [Unknown]
